FAERS Safety Report 13205450 (Version 2)
Quarter: 2017Q1

REPORT INFORMATION
  Report Type: Spontaneous
  Country: US (occurrence: US)
  Receive Date: 20170209
  Receipt Date: 20170305
  Transmission Date: 20170428
  Serious: No
  Sender: FDA-Public Use
  Company Number: US-BAXTER-2017BAX003668

PATIENT
  Age: 74 Year
  Sex: Male

DRUGS (2)
  1. 0.9% SODIUM CHLORIDE INJECTION [Suspect]
     Active Substance: SODIUM CHLORIDE
     Dosage: DOSE REINTRODUCE WITH CHANGED SITE
     Route: 042
     Dates: start: 20170119
  2. 0.9% SODIUM CHLORIDE INJECTION [Suspect]
     Active Substance: SODIUM CHLORIDE
     Indication: DEHYDRATION
     Dosage: INFUSED INTO THE ANTECUBITAL SPACE
     Route: 042
     Dates: start: 20170119, end: 20170119

REACTIONS (3)
  - Infusion site pain [Unknown]
  - Injection site extravasation [Recovering/Resolving]
  - Infusion site swelling [Unknown]

NARRATIVE: CASE EVENT DATE: 20170119
